FAERS Safety Report 21616999 (Version 1)
Quarter: 2022Q4

REPORT INFORMATION
  Report Type: Spontaneous
  Country: KR (occurrence: KR)
  Receive Date: 20221118
  Receipt Date: 20221118
  Transmission Date: 20230113
  Serious: Yes (Hospitalization)
  Sender: FDA-Public Use
  Company Number: KR-BAYER-2022A158474

PATIENT
  Age: 69 Year
  Sex: Male

DRUGS (3)
  1. VITRAKVI [Suspect]
     Active Substance: LAROTRECTINIB
     Indication: Colorectal cancer
     Dosage: UNK
     Dates: start: 20201128
  2. VITRAKVI [Suspect]
     Active Substance: LAROTRECTINIB
     Indication: Metastases to liver
  3. VITRAKVI [Suspect]
     Active Substance: LAROTRECTINIB
     Indication: Metastases to lung

REACTIONS (2)
  - Metastases to central nervous system [Recovering/Resolving]
  - Weight increased [None]

NARRATIVE: CASE EVENT DATE: 20220527
